FAERS Safety Report 23581528 (Version 1)
Quarter: 2024Q1

REPORT INFORMATION
  Report Type: Spontaneous
  Country: DE (occurrence: DE)
  Receive Date: 20240229
  Receipt Date: 20240229
  Transmission Date: 20240410
  Serious: Yes (Other)
  Sender: FDA-Public Use
  Company Number: DE-002147023-NVSC2024DE042467

PATIENT
  Sex: Male

DRUGS (1)
  1. ALPELISIB [Suspect]
     Active Substance: ALPELISIB
     Indication: Bronchial carcinoma
     Dosage: UNK
     Route: 065

REACTIONS (4)
  - Bronchial carcinoma [Unknown]
  - Malignant neoplasm progression [Unknown]
  - Drug effective for unapproved indication [Unknown]
  - Off label use [Unknown]
